FAERS Safety Report 21173504 (Version 1)
Quarter: 2022Q3

REPORT INFORMATION
  Report Type: Spontaneous
  Country: US (occurrence: US)
  Receive Date: 20220804
  Receipt Date: 20220804
  Transmission Date: 20221026
  Serious: Yes (Other)
  Sender: FDA-Public Use
  Company Number: US-SA-SAC20220802001187

PATIENT
  Age: 48 Year
  Sex: Female

DRUGS (1)
  1. ZANTAC [Suspect]
     Active Substance: RANITIDINE HYDROCHLORIDE
     Indication: Dyspepsia
     Dosage: UNK UNK, (UNKNOWN AT THIS TIME) QD
     Route: 065
     Dates: start: 200004, end: 201511

REACTIONS (1)
  - Gastric cancer stage I [Not Recovered/Not Resolved]

NARRATIVE: CASE EVENT DATE: 20150101
